FAERS Safety Report 7626144-9 (Version None)
Quarter: 2011Q3

REPORT INFORMATION
  Report Type: 
  Country: None (occurrence: None)
  Receive Date: 20110713
  Receipt Date: 20110628
  Transmission Date: 20111222
  Serious: Yes (Death)
  Sender: FDA-Public Use
  Company Number: TPA2011A02313

PATIENT
  Age: 55 Year
  Sex: Female

DRUGS (8)
  1. ESTROVEN (PYRIDOXINE HYROCHLORIDE, TOCOPEROL, FOLIC ACID, THIAMINE, NI [Concomitant]
  2. QVAR [Concomitant]
  3. VENTOLIN [Concomitant]
  4. DEXILANT [Suspect]
     Indication: NAUSEA
     Dosage: 6MG,1 IN 1 D, PER ORAL
     Route: 048
     Dates: start: 20110421
  5. DEXILANT [Suspect]
     Indication: ABDOMINAL PAIN UPPER
     Dosage: 6MG,1 IN 1 D, PER ORAL
     Route: 048
     Dates: start: 20110421
  6. DEXILANT [Suspect]
     Indication: GASTROOESOPHAGEAL REFLUX DISEASE
     Dosage: 6MG,1 IN 1 D, PER ORAL
     Route: 048
     Dates: start: 20110421
  7. DEXILANT [Suspect]
     Indication: ABDOMINAL DISTENSION
     Dosage: 6MG,1 IN 1 D, PER ORAL
     Route: 048
     Dates: start: 20110421
  8. SYMBICORT [Concomitant]

REACTIONS (2)
  - CARDIAC FAILURE [None]
  - HYPERSENSITIVITY [None]
